FAERS Safety Report 10890454 (Version 1)
Quarter: 2015Q1

REPORT INFORMATION
  Report Type: Spontaneous
  Country: FR (occurrence: FR)
  Receive Date: 20150305
  Receipt Date: 20150305
  Transmission Date: 20150721
  Serious: Yes (Other)
  Sender: FDA-Public Use
  Company Number: FR-RANBAXY-2015R1-93819

PATIENT
  Age: 80 Year
  Sex: Female

DRUGS (3)
  1. NAPROXEN. [Suspect]
     Active Substance: NAPROXEN
     Indication: ARTHRALGIA
     Dosage: 750 MG, QD
     Route: 065
  2. BILASTINE [Concomitant]
     Active Substance: BILASTINE
     Indication: PRODUCT USED FOR UNKNOWN INDICATION
     Dosage: UNK
     Route: 065
  3. AMOXICILLINE/CLAVULANIC ACID [Concomitant]
     Indication: PRODUCT USED FOR UNKNOWN INDICATION
     Dosage: UNK
     Route: 065

REACTIONS (1)
  - Pulmonary eosinophilia [Recovering/Resolving]
